FAERS Safety Report 7760489-7 (Version None)
Quarter: 2011Q3

REPORT INFORMATION
  Report Type: 
  Country: None (occurrence: None)
  Receive Date: 20110919
  Receipt Date: 20110912
  Transmission Date: 20111222
  Serious: Yes (Death, Other)
  Sender: FDA-Public Use
  Company Number: US-BAYER-201041780NA

PATIENT
  Age: 71 Year
  Sex: Male
  Weight: 109 kg

DRUGS (13)
  1. TRASYLOL [Suspect]
     Indication: MITRAL VALVE REPLACEMENT
     Dosage: TEST DOSE - 1 ML
     Route: 042
     Dates: start: 20071204, end: 20071204
  2. DOPAMINE HCL [Concomitant]
     Dosage: UNK
     Dates: start: 20071204
  3. INSULIN [Concomitant]
  4. PROTONIX [Concomitant]
  5. COUMADIN [Concomitant]
  6. LISINOPRIL [Concomitant]
     Dosage: 10 MG, UNK
     Route: 048
     Dates: start: 20051126
  7. LASIX [Concomitant]
  8. COREG [Concomitant]
  9. HEPARIN [Concomitant]
     Dosage: UNK
     Dates: start: 20071204
  10. TRASYLOL [Suspect]
     Dosage: LOADING DOSE - 200ML FOLLOWED BY 50ML/HR
     Dates: start: 20071204, end: 20071204
  11. BETAPACE [Concomitant]
  12. ZETIA [Concomitant]
  13. PROTAMINE [Concomitant]
     Dosage: UNK
     Dates: start: 20071204

REACTIONS (12)
  - PAIN [None]
  - UNEVALUABLE EVENT [None]
  - ANXIETY [None]
  - MULTI-ORGAN FAILURE [None]
  - RENAL INJURY [None]
  - EMOTIONAL DISTRESS [None]
  - ATRIAL FIBRILLATION [None]
  - RENAL FAILURE [None]
  - RENAL IMPAIRMENT [None]
  - STRESS [None]
  - FEAR [None]
  - DEATH [None]
